FAERS Safety Report 8342358-7 (Version None)
Quarter: 2012Q2

REPORT INFORMATION
  Report Type: 
  Country: None (occurrence: None)
  Receive Date: 20120508
  Receipt Date: 20120430
  Transmission Date: 20120825
  Serious: Yes (Hospitalization, Other)
  Sender: FDA-Public Use
  Company Number: US-ASTRAZENECA-2012SE27859

PATIENT
  Sex: Male

DRUGS (7)
  1. NEXIUM [Suspect]
     Indication: GASTROOESOPHAGEAL REFLUX DISEASE
     Route: 048
     Dates: start: 20080401, end: 20100901
  2. DEXILANT [Suspect]
     Indication: GASTROOESOPHAGEAL REFLUX DISEASE
     Dates: start: 20080401, end: 20100901
  3. ZANTAC [Concomitant]
     Dates: start: 20100901
  4. PREVACID [Suspect]
     Indication: GASTROOESOPHAGEAL REFLUX DISEASE
     Dates: start: 20080401, end: 20100901
  5. ACIPHEX [Suspect]
     Indication: GASTROOESOPHAGEAL REFLUX DISEASE
     Dates: start: 20080401, end: 20100901
  6. KAPIDEX [Suspect]
     Indication: GASTROOESOPHAGEAL REFLUX DISEASE
     Dates: start: 20080401, end: 20100901
  7. ZEGERID [Suspect]
     Indication: GASTROOESOPHAGEAL REFLUX DISEASE
     Dates: start: 20080401, end: 20100901

REACTIONS (11)
  - FATIGUE [None]
  - HYPOMAGNESAEMIA [None]
  - GASTRITIS EROSIVE [None]
  - EROSIVE OESOPHAGITIS [None]
  - HEART RATE IRREGULAR [None]
  - EMOTIONAL DISTRESS [None]
  - MUSCLE SPASMS [None]
  - CONFUSIONAL STATE [None]
  - BOWEL MOVEMENT IRREGULARITY [None]
  - DIZZINESS [None]
  - PAIN [None]
